FAERS Safety Report 5566796-0 (Version None)
Quarter: 2007Q4

REPORT INFORMATION
  Report Type: 
  Country: None (occurrence: None)
  Receive Date: 20071219
  Receipt Date: 20071213
  Transmission Date: 20080405
  Serious: Yes (Hospitalization, Disabling, Other)
  Sender: FDA-Public Use
  Company Number: A0699792A

PATIENT
  Age: 64 Year
  Sex: Male

DRUGS (9)
  1. MELPHALAN [Suspect]
     Indication: MULTIPLE MYELOMA
     Dosage: .18MGK SEE DOSAGE TEXT
     Route: 065
     Dates: start: 20060804
  2. REVLIMID [Suspect]
     Indication: MULTIPLE MYELOMA
     Dosage: 10MG PER DAY
     Route: 048
     Dates: start: 20060803
  3. DEXAMETHASONE TAB [Concomitant]
     Dosage: 40MG SEE DOSAGE TEXT
     Dates: start: 20060804
  4. ZOMETA [Concomitant]
     Dosage: 4MG MONTHLY
     Dates: start: 20060724
  5. PLAVIX [Concomitant]
     Indication: CORONARY ARTERY DISEASE
     Dosage: 75MG PER DAY
     Route: 048
     Dates: start: 20060101
  6. PEPCID AC [Concomitant]
     Dates: start: 20060804
  7. CIPROFLOXACIN HCL [Concomitant]
     Indication: INFECTION
     Dosage: 1000MG PER DAY
     Route: 048
     Dates: start: 20060804, end: 20060901
  8. ALLOPURINOL [Concomitant]
     Indication: NEPHROPATHY
     Dosage: 300MG PER DAY
     Dates: start: 20060804, end: 20061001
  9. PERCOCET [Concomitant]
     Route: 048
     Dates: start: 20060601

REACTIONS (26)
  - ABDOMINAL PAIN [None]
  - ANOREXIA [None]
  - ASTHENIA [None]
  - BACK PAIN [None]
  - BLOOD CREATININE INCREASED [None]
  - BLOOD UREA INCREASED [None]
  - DEHYDRATION [None]
  - DYSGEUSIA [None]
  - DYSPHONIA [None]
  - DYSPNOEA [None]
  - FATIGUE [None]
  - GAIT DISTURBANCE [None]
  - HEART RATE INCREASED [None]
  - HEART RATE IRREGULAR [None]
  - HYPERTENSION [None]
  - MUSCLE SPASMS [None]
  - NAUSEA [None]
  - ORAL INTAKE REDUCED [None]
  - PAIN [None]
  - PLATELET COUNT DECREASED [None]
  - PYREXIA [None]
  - RED BLOOD CELL COUNT DECREASED [None]
  - SYNCOPE [None]
  - TACHYCARDIA [None]
  - TREMOR [None]
  - WHITE BLOOD CELL COUNT DECREASED [None]
